FAERS Safety Report 7440904-9 (Version None)
Quarter: 2011Q2

REPORT INFORMATION
  Report Type: 
  Country: None (occurrence: None)
  Receive Date: 20110427
  Receipt Date: 20110413
  Transmission Date: 20111010
  Serious: Yes (Death, Other)
  Sender: FDA-Public Use
  Company Number: US-ACTELION-A-US2011-47423

PATIENT

DRUGS (2)
  1. TRACLEER [Suspect]
     Indication: PULMONARY ARTERIAL HYPERTENSION
     Dosage: UNK
     Route: 048
     Dates: start: 20020226
  2. TADALAFIL [Concomitant]

REACTIONS (11)
  - COLECTOMY [None]
  - BRADYCARDIA [None]
  - DEATH [None]
  - COLON NEOPLASM [None]
  - PULSE ABSENT [None]
  - LOSS OF CONSCIOUSNESS [None]
  - NEOPLASM MALIGNANT [None]
  - METABOLIC ACIDOSIS [None]
  - HYPOTENSION [None]
  - RESPIRATORY ACIDOSIS [None]
  - TACHYCARDIA [None]
